FAERS Safety Report 21633020 (Version 1)
Quarter: 2022Q4

REPORT INFORMATION
  Report Type: Spontaneous
  Country: US (occurrence: None)
  Receive Date: 20221122
  Receipt Date: 20221122
  Transmission Date: 20230113
  Serious: Yes (Hospitalization)
  Sender: FDA-Public Use
  Company Number: None

PATIENT
  Age: 68 Year
  Sex: Male
  Weight: 72 kg

DRUGS (7)
  1. YESCARTA [Suspect]
     Active Substance: AXICABTAGENE CILOLEUCEL
     Indication: Diffuse large B-cell lymphoma
     Dosage: FREQUENCY : ONCE;?
     Route: 041
     Dates: start: 20220808, end: 20220808
  2. ACTEMRA [Concomitant]
     Active Substance: TOCILIZUMAB
     Dates: end: 20220813
  3. anakinra (Kineret) subcutaneous injection [Concomitant]
     Dates: end: 20220819
  4. dexAMETHasone (Decadron) injection [Concomitant]
     Dates: end: 20220823
  5. levETIRAcetam (Keppra) 500 mg tablet [Concomitant]
     Dates: start: 20220808, end: 20221122
  6. acyclovir (Zovirax) [Concomitant]
     Dates: start: 20220808, end: 20221122
  7. cefepime (Maxipime [Concomitant]
     Dates: end: 20220815

REACTIONS (2)
  - Cytokine release syndrome [None]
  - Neurotoxicity [None]

NARRATIVE: CASE EVENT DATE: 20220808
